FAERS Safety Report 10178612 (Version 8)
Quarter: 2015Q1

REPORT INFORMATION
  Report Type: Spontaneous
  Country: US (occurrence: US)
  Receive Date: 20140519
  Receipt Date: 20150210
  Transmission Date: 20150720
  Serious: Yes (Hospitalization, Disabling, Other)
  Sender: FDA-Public Use
  Company Number: US-009507513-1405USA005713

PATIENT
  Sex: Female
  Weight: 68.27 kg

DRUGS (5)
  1. FOSAMAX [Suspect]
     Active Substance: ALENDRONATE SODIUM
     Indication: OSTEOPENIA
     Dosage: 35 MG, UNK
     Route: 048
     Dates: start: 20010307, end: 20060120
  2. SYNTHROID [Concomitant]
     Active Substance: LEVOTHYROXINE SODIUM
     Indication: HYPOTHYROIDISM
     Dosage: UNK, QD
     Dates: start: 1970
  3. FOSAMAX PLUS D [Suspect]
     Active Substance: ALENDRONATE SODIUM\CHOLECALCIFEROL
     Indication: OSTEOPENIA
     Dosage: 70 MG/2800 IU QW
     Route: 048
     Dates: start: 20060120, end: 20111116
  4. CENTRUM SILVER [Concomitant]
     Active Substance: VITAMINS
     Dosage: 600 MG, QD
     Dates: start: 2000
  5. HORMONES (UNSPECIFIED) [Concomitant]
     Active Substance: UNSPECIFIED INGREDIENT
     Dosage: UNK
     Dates: start: 2003, end: 2006

REACTIONS (36)
  - Colectomy [Unknown]
  - Spinal osteoarthritis [Unknown]
  - Occipital neuralgia [Unknown]
  - Increased tendency to bruise [Unknown]
  - Bursitis [Not Recovered/Not Resolved]
  - Snoring [Unknown]
  - Blood cholesterol increased [Unknown]
  - Foot fracture [Unknown]
  - Arthralgia [Unknown]
  - Intramedullary rod insertion [Unknown]
  - Foot fracture [Unknown]
  - Tinnitus [Unknown]
  - Weight increased [Unknown]
  - Foot fracture [Unknown]
  - Dental implantation [Unknown]
  - Myofascitis [Unknown]
  - Joint stiffness [Unknown]
  - Rotator cuff syndrome [Unknown]
  - Fracture nonunion [Unknown]
  - Osteoporosis [Not Recovered/Not Resolved]
  - Intramedullary rod insertion [Unknown]
  - Device failure [Unknown]
  - Feeling hot [Unknown]
  - Foot fracture [Recovered/Resolved]
  - Medical device removal [Unknown]
  - Fracture nonunion [Recovered/Resolved]
  - Plantar fasciitis [Unknown]
  - Synovial cyst [Not Recovered/Not Resolved]
  - Depression [Unknown]
  - Low turnover osteopathy [Not Recovered/Not Resolved]
  - Colon cancer [Unknown]
  - Dental implantation [Unknown]
  - Arthralgia [Unknown]
  - Femur fracture [Recovered/Resolved]
  - Asthenia [Unknown]
  - Joint swelling [Unknown]

NARRATIVE: CASE EVENT DATE: 2005
